FAERS Safety Report 8232923-X (Version None)
Quarter: 2012Q1

REPORT INFORMATION
  Report Type: 
  Country: None (occurrence: None)
  Receive Date: 20120325
  Receipt Date: 20120312
  Transmission Date: 20120608
  Serious: Yes (Hospitalization, Disabling)
  Sender: FDA-Public Use
  Company Number: BR-ROCHE-1048216

PATIENT
  Age: 14 Year
  Sex: Male

DRUGS (4)
  1. ISOTRETINOIN [Suspect]
  2. PREDNISONE TAB [Concomitant]
     Indication: ACNE
  3. ISOTRETINOIN [Suspect]
  4. ISOTRETINOIN [Suspect]
     Indication: ACNE

REACTIONS (4)
  - ACNE FULMINANS [None]
  - SACROILIITIS [None]
  - THROMBOCYTOSIS [None]
  - GAMMA-GLUTAMYLTRANSFERASE INCREASED [None]
